FAERS Safety Report 16372886 (Version 1)
Quarter: 2019Q2

REPORT INFORMATION
  Report Type: Spontaneous
  Country: FR (occurrence: FR)
  Receive Date: 20190530
  Receipt Date: 20190530
  Transmission Date: 20190711
  Serious: Yes (Other)
  Sender: FDA-Public Use
  Company Number: FR-ALLERGAN-1922339US

PATIENT
  Sex: Male
  Weight: 82 kg

DRUGS (1)
  1. ESCITALOPRAM OXALATE - BP [Suspect]
     Active Substance: ESCITALOPRAM OXALATE
     Indication: DEPRESSION
     Dosage: 1 DF
     Route: 048
     Dates: start: 20190320

REACTIONS (2)
  - Premature ejaculation [Not Recovered/Not Resolved]
  - Spontaneous ejaculation [Not Recovered/Not Resolved]

NARRATIVE: CASE EVENT DATE: 20190321
